FAERS Safety Report 15858171 (Version 1)
Quarter: 2018Q4

REPORT INFORMATION
  Report Type: Spontaneous
  Country: US (occurrence: US)
  Receive Date: 20181228
  Receipt Date: 20181228
  Transmission Date: 20190205
  Serious: No
  Sender: FDA-Public Use
  Company Number: None

PATIENT
  Sex: Female

DRUGS (1)
  1. ENBREL [Suspect]
     Active Substance: ETANERCEPT
     Indication: RHEUMATOID ARTHRITIS
     Route: 058

REACTIONS (6)
  - Oropharyngeal pain [None]
  - Fatigue [None]
  - Rash [None]
  - Joint lock [None]
  - Headache [None]
  - Peripheral swelling [None]
